FAERS Safety Report 8710572 (Version 4)
Quarter: 2012Q4

REPORT INFORMATION
  Report Type: 
  Country: JP (occurrence: JP)
  Receive Date: 20120807
  Receipt Date: 20120907
  Transmission Date: 20130627
  Serious: Yes (Hospitalization, Other)
  Sender: FDA-Public Use
  Company Number: JP-PFIZER INC-2012184878

PATIENT
  Age: 78 Year
  Sex: Male
  Weight: 53.8 kg

DRUGS (9)
  1. VFEND [Suspect]
     Indication: BRONCHOPULMONARY ASPERGILLOSIS
     Dosage: 200 mg, 2x/day
     Route: 048
     Dates: start: 20120724, end: 20120731
  2. MEDICON [Concomitant]
     Indication: COUGH
     Dosage: 15 mg, 3x/day
     Route: 048
     Dates: start: 20120529
  3. MUCODYNE [Concomitant]
     Indication: COUGH
     Dosage: 250 mg, 3x/day
     Route: 048
     Dates: start: 20120529
  4. CODEINE PHOSPHATE [Concomitant]
     Indication: COUGH
     Dosage: 2 g, 3x/day
     Route: 048
     Dates: start: 20120618, end: 20120808
  5. HUSCODE [Concomitant]
     Indication: COUGH
     Dosage: 3 DF, 3x/day
     Route: 048
     Dates: start: 20120629, end: 20120808
  6. ERYTHROCIN [Concomitant]
     Indication: COUGH
     Dosage: 1 g, 2x/day
     Route: 048
     Dates: start: 20120629, end: 20120808
  7. FORSENID [Concomitant]
     Indication: CONSTIPATION
     Dosage: 1 DF, 1x/day
     Route: 048
     Dates: start: 20120629
  8. GLACTIV [Concomitant]
     Indication: DIABETES MELLITUS
     Dosage: 50 mg, 1x/day
     Route: 048
  9. GLIMICRON [Concomitant]
     Indication: DIABETES MELLITUS
     Dosage: 20 mg, 1x/day
     Route: 048

REACTIONS (4)
  - Delirium [Recovered/Resolved]
  - Metamorphopsia [Recovered/Resolved]
  - Disorientation [Recovered/Resolved]
  - Fall [Recovered/Resolved]
